FAERS Safety Report 19750775 (Version 2)
Quarter: 2021Q3

REPORT INFORMATION
  Report Type: Spontaneous
  Country: US (occurrence: US)
  Receive Date: 20210826
  Receipt Date: 20210928
  Transmission Date: 20211014
  Serious: No
  Sender: FDA-Public Use
  Company Number: US-ASTRAZENECA-2021A665380

PATIENT
  Sex: Female
  Weight: 149.7 kg

DRUGS (5)
  1. COMBIVENT RESCUE INHALER [Concomitant]
     Dosage: UNKNOWN
     Route: 065
  2. BREZTRI AEROSPHERE [Suspect]
     Active Substance: BUDESONIDE\FORMOTEROL\GLYCOPYRRONIUM
     Indication: CHRONIC OBSTRUCTIVE PULMONARY DISEASE
     Dosage: 160/7.2/5.0MCG, 2 PUFFS TWICE A DAY
     Route: 055
     Dates: start: 202106
  3. VENTOLIN [Concomitant]
     Active Substance: ALBUTEROL SULFATE
     Dosage: UNKNOWN
     Route: 065
  4. SINGULAIR [Concomitant]
     Active Substance: MONTELUKAST SODIUM
     Dosage: UNKNOWN
     Route: 065
  5. DUO?NEB [Concomitant]
     Dosage: UNKNOWN
     Route: 065

REACTIONS (3)
  - Device use issue [Not Recovered/Not Resolved]
  - Tonsillitis [Not Recovered/Not Resolved]
  - Device delivery system issue [Unknown]
